FAERS Safety Report 26111628 (Version 1)
Quarter: 2025Q4

REPORT INFORMATION
  Report Type: Spontaneous
  Country: JP (occurrence: JP)
  Receive Date: 20251202
  Receipt Date: 20251202
  Transmission Date: 20260117
  Serious: Yes (Other)
  Sender: RANBAXY
  Company Number: JP-SUN PHARMACEUTICAL INDUSTRIES INC-2025R1-539121

PATIENT
  Sex: Female

DRUGS (3)
  1. PAZOPANIB [Interacting]
     Active Substance: PAZOPANIB
     Indication: Metastases to lymph nodes
     Dosage: UNK
     Route: 065
  2. PAZOPANIB [Interacting]
     Active Substance: PAZOPANIB
     Indication: Metastases to pancreas
  3. PITAVASTATIN [Interacting]
     Active Substance: PITAVASTATIN
     Indication: Product used for unknown indication
     Dosage: UNK
     Route: 065

REACTIONS (4)
  - Drug eruption [Recovering/Resolving]
  - Drug-induced liver injury [Recovering/Resolving]
  - Infection [Recovering/Resolving]
  - Drug interaction [Unknown]
